FAERS Safety Report 6595145-4 (Version None)
Quarter: 2010Q1

REPORT INFORMATION
  Report Type: 
  Country: None (occurrence: None)
  Receive Date: 20100212
  Receipt Date: 20100201
  Transmission Date: 20100710
  Serious: Yes (Hospitalization)
  Sender: FDA-Public Use
  Company Number: TCI2004A02085

PATIENT
  Age: 68 Year
  Sex: Female

DRUGS (10)
  1. LANSOPRAZOLE [Suspect]
     Indication: REFLUX OESOPHAGITIS
     Dosage: 15 MG (15 MG, 1 D) PER ORAL
     Route: 048
     Dates: start: 20030101
  2. ACETYLSALICYLIC ACID [Concomitant]
  3. WARFARIN POTASSIUM [Concomitant]
  4. DOXAZOSIN MESYLATE [Concomitant]
  5. CARVEDILOL [Concomitant]
  6. SIGMART (NICORANDIL) [Concomitant]
  7. DISOPYRAMIDE [Concomitant]
  8. KALIMATE (CALCIUM POLYSTYRENE SULFONATE) [Concomitant]
  9. FERROMIA (FERROUS CITRATE) [Concomitant]
  10. LAXATIVES [Concomitant]

REACTIONS (9)
  - COLITIS COLLAGENOUS [None]
  - CONDITION AGGRAVATED [None]
  - DIARRHOEA [None]
  - GASTROOESOPHAGEAL REFLUX DISEASE [None]
  - HYPOPROTEINAEMIA [None]
  - LARGE INTESTINAL ULCER [None]
  - OEDEMA PERIPHERAL [None]
  - PROTEINURIA [None]
  - RENAL IMPAIRMENT [None]
